FAERS Safety Report 16863132 (Version 1)
Quarter: 2019Q3

REPORT INFORMATION
  Report Type: Spontaneous
  Country: US (occurrence: US)
  Receive Date: 20190927
  Receipt Date: 20190927
  Transmission Date: 20191005
  Serious: Yes (Disabling, Other)
  Sender: FDA-Public Use
  Company Number: US-SA-2019SA265698

PATIENT

DRUGS (1)
  1. GOLD BOND ORIGINAL STRENGTH POWDER [Suspect]
     Active Substance: MENTHOL\ZINC OXIDE

REACTIONS (5)
  - Occupational exposure to toxic agent [Unknown]
  - Pain [Unknown]
  - Mesothelioma [Unknown]
  - Impaired work ability [Unknown]
  - Emotional distress [Unknown]
